FAERS Safety Report 8472321-7 (Version None)
Quarter: 2012Q2

REPORT INFORMATION
  Report Type: 
  Country: None (occurrence: None)
  Receive Date: 20120323
  Receipt Date: 20110919
  Transmission Date: 20120825
  Serious: Yes (Hospitalization)
  Sender: FDA-Public Use
  Company Number: 163-21880-11082585

PATIENT
  Age: 66 Year
  Sex: Female

DRUGS (21)
  1. PROMETHAZINE HCL [Concomitant]
  2. ADVAIR HFA [Concomitant]
  3. PATANASE (OLOPATADINE HYDROCHLORIDE) [Concomitant]
  4. PROAIR (FLUTICASONE PROPIONATE) [Concomitant]
  5. ZOFRAN [Concomitant]
  6. BAYER (ACETYLSALICYLIC ACID) [Concomitant]
  7. TOPROL-XL [Concomitant]
  8. ZOLOFT [Concomitant]
  9. SIMVASTATIN [Concomitant]
  10. LISINOPRIL [Concomitant]
  11. LASIX [Concomitant]
  12. VICODIN [Concomitant]
  13. LACTULOSE [Concomitant]
  14. CIPRO (ICIPROFLOXACIN) [Concomitant]
  15. REVLIMID [Suspect]
     Indication: MULTIPLE MYELOMA
     Dosage: 15 MG, QD DAYS 1-21, PO
     Route: 048
     Dates: start: 20101001, end: 20110803
  16. COUMADIN [Concomitant]
  17. KLOR-CON [Concomitant]
  18. CLARITIN [Concomitant]
  19. NASONEX [Concomitant]
  20. INSULIN [Concomitant]
  21. CLONIDINE HCL (CLONIDINE HYDROCHLORIDE) [Concomitant]

REACTIONS (6)
  - DYSPNOEA [None]
  - PANCYTOPENIA [None]
  - ASTHENIA [None]
  - PRESYNCOPE [None]
  - MULTIPLE MYELOMA [None]
  - MALAISE [None]
